FAERS Safety Report 4757076-1 (Version None)
Quarter: 2005Q3

REPORT INFORMATION
  Report Type: 
  Country: None (occurrence: None)
  Receive Date: 20050829
  Receipt Date: 20050818
  Transmission Date: 20060218
  Serious: Yes (Other)
  Sender: FDA-Public Use
  Company Number: SUS1-2005-00630

PATIENT
  Age: 10 Year
  Sex: Male
  Weight: 34 kg

DRUGS (1)
  1. ADDERALL XR 20 [Suspect]
     Indication: ATTENTION DEFICIT/HYPERACTIVITY DISORDER
     Dosage: 40 M G, 1X/DAY; QD, ORAL
     Route: 048
     Dates: start: 20000101, end: 20030101

REACTIONS (5)
  - GLAUCOMA [None]
  - HEADACHE [None]
  - HYPERMETROPIA [None]
  - PRESCRIBED OVERDOSE [None]
  - VOMITING [None]
